FAERS Safety Report 18402086 (Version 2)
Quarter: 2021Q2

REPORT INFORMATION
  Report Type: Report from Study
  Country: BR (occurrence: BR)
  Receive Date: 20201020
  Receipt Date: 20210401
  Transmission Date: 20210717
  Serious: Yes (Hospitalization, Other)
  Sender: FDA-Public Use
  Company Number: BR-UCBSA-2020040619

PATIENT
  Age: 55 Year
  Sex: Female
  Weight: 49 kg

DRUGS (7)
  1. DICLOFENAC [Concomitant]
     Active Substance: DICLOFENAC
     Indication: PRODUCT USED FOR UNKNOWN INDICATION
     Dosage: UNK
  2. CEFALEXINA (CEFALOGA) [Concomitant]
     Indication: UNEVALUABLE EVENT
     Dosage: 500 MILLIGRAM, 4X/DAY (QID)
     Route: 042
  3. DIPIRONA [Concomitant]
     Active Substance: METAMIZOLE
     Indication: TIBIA FRACTURE
     Dosage: 40 DROP, ONCE DAILY (QD)
     Route: 048
  4. CERTOLIZUMAB PEGOL RA [Suspect]
     Active Substance: CERTOLIZUMAB PEGOL
     Indication: RHEUMATOID ARTHRITIS
     Dosage: 400 MILLIGRAM, EV 4 WEEKS
     Route: 058
     Dates: end: 202009
  5. METHOTREXATE. [Concomitant]
     Active Substance: METHOTREXATE
     Indication: PSORIASIS
  6. METHOTREXATE. [Concomitant]
     Active Substance: METHOTREXATE
     Indication: RHEUMATOID ARTHRITIS
     Dosage: UNK
  7. XARELTO [Concomitant]
     Active Substance: RIVAROXABAN
     Indication: TIBIA FRACTURE
     Dosage: 10 MILLIGRAM, ONCE DAILY (QD)
     Route: 058

REACTIONS (4)
  - Tibia fracture [Recovered/Resolved]
  - Memory impairment [Not Recovered/Not Resolved]
  - Bone loss [Not Recovered/Not Resolved]
  - Fall [Recovered/Resolved]

NARRATIVE: CASE EVENT DATE: 202002
